FAERS Safety Report 15762663 (Version 2)
Quarter: 2020Q1

REPORT INFORMATION
  Report Type: Spontaneous
  Country: FR (occurrence: FR)
  Receive Date: 20181226
  Receipt Date: 20200116
  Transmission Date: 20200409
  Serious: Yes (Hospitalization, Other)
  Sender: FDA-Public Use
  Company Number: FR-PFIZER INC-2018521425

PATIENT
  Age: 22 Year
  Sex: Male
  Weight: 74 kg

DRUGS (2)
  1. TAZOCILLINE [Suspect]
     Active Substance: PIPERACILLIN SODIUM\TAZOBACTAM SODIUM
     Indication: DOUGLAS^ ABSCESS
     Dosage: 12 G, 1X/DAY
     Route: 041
     Dates: start: 20180302, end: 20180324
  2. PARACETAMOL [Suspect]
     Active Substance: ACETAMINOPHEN
     Indication: ABDOMINAL PAIN
     Dosage: 3 G, 1X/DAY
     Route: 048
     Dates: start: 20180320, end: 20180323

REACTIONS (3)
  - Rash [Recovered/Resolved]
  - Hepatocellular injury [Recovered/Resolved]
  - Leukopenia [Recovered/Resolved]

NARRATIVE: CASE EVENT DATE: 20180323
